FAERS Safety Report 20098135 (Version 2)
Quarter: 2021Q4

REPORT INFORMATION
  Report Type: Spontaneous
  Country: US (occurrence: US)
  Receive Date: 20211122
  Receipt Date: 20211130
  Transmission Date: 20220303
  Serious: Yes (Other)
  Sender: FDA-Public Use
  Company Number: US-CELGENE-USA-20211104774

PATIENT
  Sex: Female
  Weight: 79.995 kg

DRUGS (2)
  1. REVLIMID [Suspect]
     Active Substance: LENALIDOMIDE
     Indication: Plasma cell myeloma
     Dosage: 10 MILLIGRAM
     Route: 048
     Dates: start: 202102
  2. REVLIMID [Suspect]
     Active Substance: LENALIDOMIDE
     Indication: 5q minus syndrome
     Dosage: 5 MILLIGRAM
     Route: 048
     Dates: start: 20210504, end: 20211115

REACTIONS (1)
  - Myelosuppression [Unknown]

NARRATIVE: CASE EVENT DATE: 20210101
